FAERS Safety Report 23982030 (Version 6)
Quarter: 2024Q4

REPORT INFORMATION
  Report Type: Spontaneous
  Country: US (occurrence: US)
  Receive Date: 20240617
  Receipt Date: 20241126
  Transmission Date: 20250115
  Serious: No
  Sender: CALLIDITAS THERAPEUTICS AB
  Company Number: US-Calliditas-2024CAL00975

PATIENT
  Age: 45 Year
  Sex: Male
  Weight: 95 kg

DRUGS (2)
  1. TARPEYO [Suspect]
     Active Substance: BUDESONIDE
     Indication: Haematuria
     Route: 048
     Dates: start: 20240501
  2. ZOLOFT [Concomitant]
     Active Substance: SERTRALINE HYDROCHLORIDE

REACTIONS (16)
  - Irritability [Unknown]
  - Hot flush [Unknown]
  - Hyperhidrosis [Unknown]
  - Off label use [Unknown]
  - Pruritus [Unknown]
  - Anxiety [Unknown]
  - Frustration tolerance decreased [Unknown]
  - Confusional state [Not Recovered/Not Resolved]
  - Weight decreased [Unknown]
  - Hypophagia [Unknown]
  - Disturbance in attention [Unknown]
  - Abulia [Unknown]
  - Mental disorder [Unknown]
  - Anger [Unknown]
  - Obsessive-compulsive disorder [Unknown]
  - Condition aggravated [Unknown]
